FAERS Safety Report 23718135 (Version 1)
Quarter: 2024Q2

REPORT INFORMATION
  Report Type: Spontaneous
  Country: US (occurrence: None)
  Receive Date: 20240406
  Receipt Date: 20240406
  Transmission Date: 20240715
  Serious: Yes (Disabling)
  Sender: FDA-Public Use
  Company Number: None

PATIENT
  Age: 59 Year
  Sex: Female
  Weight: 72 kg

DRUGS (1)
  1. CLONAZEPAM [Suspect]
     Active Substance: CLONAZEPAM
     Indication: Vertigo CNS origin
     Dosage: 30 TABLETS AT BEDTIME ORAL?
     Route: 048
     Dates: start: 20240405, end: 20240406

REACTIONS (2)
  - Illness [None]
  - Fear [None]

NARRATIVE: CASE EVENT DATE: 20240405
